FAERS Safety Report 10218407 (Version 1)
Quarter: 2014Q2

REPORT INFORMATION
  Report Type: Spontaneous
  Country: GB (occurrence: GB)
  Receive Date: 20140605
  Receipt Date: 20140605
  Transmission Date: 20141212
  Serious: Yes (Death, Life-Threatening, Hospitalization)
  Sender: FDA-Public Use
  Company Number: GB-JNJFOC-20140601866

PATIENT
  Age: 71 Year
  Sex: Female

DRUGS (8)
  1. REMICADE [Suspect]
     Indication: PRODUCT USED FOR UNKNOWN INDICATION
     Dosage: 145MG STRENGTH
     Route: 042
     Dates: start: 20030607, end: 20031124
  2. FOLIC ACID [Concomitant]
     Route: 048
  3. RAMIPRIL [Concomitant]
     Route: 065
  4. METHOTREXATE [Concomitant]
     Route: 065
  5. AMLODIPINE [Concomitant]
     Route: 065
  6. PREDNISOLONE [Concomitant]
     Route: 065
  7. EVISTA [Concomitant]
     Route: 065
  8. GLICLAZIDE [Concomitant]
     Route: 065

REACTIONS (2)
  - Disseminated tuberculosis [Fatal]
  - Pneumonia [Not Recovered/Not Resolved]
